FAERS Safety Report 24625224 (Version 1)
Quarter: 2024Q4

REPORT INFORMATION
  Report Type: Spontaneous
  Country: US (occurrence: None)
  Receive Date: 20241115
  Receipt Date: 20241115
  Transmission Date: 20250115
  Serious: Yes (Hospitalization)
  Sender: Public
  Company Number: None

PATIENT
  Sex: Female

DRUGS (2)
  1. NIVESTYM [Suspect]
     Active Substance: FILGRASTIM-AAFI
     Indication: Seizure
     Dosage: OTHER FREQUENCY : WKLYFOR 6 WKS;?
     Route: 058
     Dates: start: 202402
  2. NIVESTYM [Suspect]
     Active Substance: FILGRASTIM-AAFI
     Indication: Nervous system disorder

REACTIONS (1)
  - Hospitalisation [None]
